FAERS Safety Report 17192561 (Version 1)
Quarter: 2019Q4

REPORT INFORMATION
  Report Type: Spontaneous
  Country: FR (occurrence: FR)
  Receive Date: 20191223
  Receipt Date: 20191223
  Transmission Date: 20200122
  Serious: Yes (Other)
  Sender: FDA-Public Use
  Company Number: FR-PURACAP PHARMACEUTICAL LLC-2019EPC00357

PATIENT
  Age: 58 Year
  Sex: Male

DRUGS (2)
  1. CETIRIZINE [Concomitant]
     Active Substance: CETIRIZINE HYDROCHLORIDE
     Route: 065
  2. DOXYCYCLINE HYCLATE. [Suspect]
     Active Substance: DOXYCYCLINE HYCLATE
     Indication: CHLAMYDIAL INFECTION
     Route: 048

REACTIONS (3)
  - Dermatitis bullous [Recovering/Resolving]
  - Contraindicated product administered [Recovered/Resolved]
  - Fixed eruption [Recovering/Resolving]
